FAERS Safety Report 7169514 (Version 2)
Quarter: 2020Q3

REPORT INFORMATION
  Report Type: Report from Study
  Country: US (occurrence: US)
  Receive Date: 20091106
  Receipt Date: 20091230
  Transmission Date: 20201104
  Serious: Yes (Other)
  Sender: FDA-Public Use
  Company Number: US-JNJFOC-20091009079

PATIENT
  Age: 82 Year
  Sex: Female

DRUGS (2)
  1. INFLIXIMAB [Suspect]
     Active Substance: INFLIXIMAB
     Route: 042
  2. INFLIXIMAB [Suspect]
     Active Substance: INFLIXIMAB
     Indication: CHRONIC OBSTRUCTIVE PULMONARY DISEASE
     Route: 042

REACTIONS (2)
  - Bronchioloalveolar carcinoma [Unknown]
  - Squamous cell carcinoma of lung [Not Recovered/Not Resolved]

NARRATIVE: CASE EVENT DATE: 20091020
